FAERS Safety Report 5507940-0 (Version None)
Quarter: 2007Q4

REPORT INFORMATION
  Report Type: 
  Country: None (occurrence: None)
  Receive Date: 20071106
  Receipt Date: 20071026
  Transmission Date: 20080405
  Serious: Yes (Hospitalization, Other)
  Sender: FDA-Public Use
  Company Number: HQWYE949528JAN05

PATIENT
  Sex: Female

DRUGS (5)
  1. PREMPRO [Suspect]
     Dosage: UNKNOWN
     Route: 048
     Dates: start: 19960701, end: 20020401
  2. ESTRADIOL [Suspect]
  3. MEDROXYPROGESTERONE ACETATE [Suspect]
     Dosage: 2.5 MG
     Route: 048
  4. PREMARIN [Suspect]
     Dosage: 0.625 MG
     Route: 048
     Dates: start: 19950201, end: 19960701
  5. PROVERA [Suspect]
     Dosage: 2.5 MG
     Route: 048

REACTIONS (1)
  - OVARIAN CANCER METASTATIC [None]
